FAERS Safety Report 5105968-6 (Version None)
Quarter: 2006Q3

REPORT INFORMATION
  Report Type: 
  Country: None (occurrence: None)
  Receive Date: 20060912
  Receipt Date: 20060830
  Transmission Date: 20061208
  Serious: Yes (Other)
  Sender: FDA-Public Use
  Company Number: 2006108344

PATIENT
  Age: 30 Year
  Sex: Female

DRUGS (5)
  1. SOLU-MEDROL [Suspect]
     Indication: PREMEDICATION
     Dosage: 250 MG, FREQUENCY: OTO), INTRAVENOUS
     Route: 042
     Dates: start: 20060819
  2. ESCITALOPRAM OXALATE [Concomitant]
  3. QUETIAPINE FUMARATE [Concomitant]
  4. VALPROIC ACID [Concomitant]
  5. PROPRANOLOL [Concomitant]

REACTIONS (3)
  - DRUG INTERACTION [None]
  - LABORATORY TEST INTERFERENCE [None]
  - SYMPTOM MASKED [None]
